FAERS Safety Report 5393109-X (Version None)
Quarter: 2007Q3

REPORT INFORMATION
  Report Type: 
  Country: None (occurrence: None)
  Receive Date: 20070718
  Receipt Date: 20070704
  Transmission Date: 20080115
  Serious: Yes (Hospitalization)
  Sender: FDA-Public Use
  Company Number: 2007AP000703

PATIENT
  Age: 58 Year
  Sex: Female

DRUGS (7)
  1. APO-DIVALPROEX (VALPROATE SEMISODIUM) [Suspect]
     Indication: DRUG USE FOR UNKNOWN INDICATION
     Dosage: SEE IMAGE
     Route: 048
     Dates: start: 20060101, end: 20070601
  2. TEMAZEPAN (TEMAZEPAM) [Concomitant]
  3. TRAZODONE HCL [Concomitant]
  4. HYDROMORPHONE HCL [Concomitant]
  5. LOSARTAN POTASSIUM [Concomitant]
  6. PROCYCLIDINE HYDROCHLORIDE 2MG TAB [Concomitant]
  7. LORAZEPAM [Concomitant]

REACTIONS (2)
  - ANTICONVULSANT DRUG LEVEL DECREASED [None]
  - CONVULSION [None]
